FAERS Safety Report 6987159-7 (Version None)
Quarter: 2010Q3

REPORT INFORMATION
  Report Type: 
  Country: None (occurrence: None)
  Receive Date: 20100916
  Receipt Date: 20100907
  Transmission Date: 20110219
  Serious: Yes (Other)
  Sender: FDA-Public Use
  Company Number: JP-PFIZER INC-2010112966

PATIENT
  Age: 46 Year
  Sex: Female

DRUGS (8)
  1. CHAMPIX [Suspect]
     Dosage: 0.5MG/DAY
     Route: 048
     Dates: start: 20100831
  2. ARTANE [Concomitant]
     Dosage: 12MG/DAY
     Route: 048
     Dates: start: 20010901
  3. HIRNAMIN [Concomitant]
     Dosage: 350MG/DAY
     Route: 048
     Dates: start: 20010901
  4. SEROQUEL [Concomitant]
     Dosage: 600MG/DAY
     Route: 048
     Dates: start: 20010901
  5. VEGETAMIN A [Concomitant]
     Dosage: 1DF/DAY
     Route: 048
     Dates: start: 20010901
  6. SILECE [Concomitant]
     Dosage: 80MG/DAY
     Route: 048
     Dates: start: 20010901
  7. BENZALIN [Concomitant]
     Dosage: 10MG/DAY
     Route: 048
     Dates: start: 20010901
  8. VEGETAMIN B [Concomitant]
     Dosage: 1DF/DAY
     Dates: start: 20010901

REACTIONS (3)
  - AFFECT LABILITY [None]
  - AGGRESSION [None]
  - EMOTIONAL DISORDER [None]
